FAERS Safety Report 8819800 (Version 1)
Quarter: 2012Q4

REPORT INFORMATION
  Report Type: 
  Country: DE (occurrence: DE)
  Receive Date: 20121001
  Receipt Date: 20121001
  Transmission Date: 20130627
  Serious: Yes (Other)
  Sender: FDA-Public Use
  Company Number: DE-ASTRAZENECA-2012SE31552

PATIENT
  Age: 65 Year
  Sex: Male

DRUGS (2)
  1. BRILIQUE [Suspect]
     Indication: ANGINA PECTORIS
     Route: 048
  2. ASS [Concomitant]
     Dosage: DAILY
     Route: 048
     Dates: start: 20120427

REACTIONS (2)
  - Thrombosis in device [Recovered/Resolved]
  - Drug ineffective [Unknown]
